FAERS Safety Report 7864396-0 (Version None)
Quarter: 2011Q4

REPORT INFORMATION
  Report Type: 
  Country: None (occurrence: None)
  Receive Date: 20111028
  Receipt Date: 20111013
  Transmission Date: 20120403
  Serious: Yes (Life-Threatening, Hospitalization)
  Sender: FDA-Public Use
  Company Number: PHHY2011NL76681

PATIENT
  Sex: Female
  Weight: 57 kg

DRUGS (8)
  1. ZOLEDRONOC ACID [Suspect]
     Indication: OSTEOPOROSIS
     Dosage: 5 MG/100ML
     Route: 042
     Dates: start: 20100831
  2. METHOTREXATE [Concomitant]
     Dosage: 10 MG ONCE WEEKLY
  3. PREDNISONE [Concomitant]
     Dosage: 5 MG, UNK
  4. IRBESARTAN AND HYDROCHLOROTHIAZIDE [Concomitant]
     Dosage: 150/12.5
  5. OMEPRAZOLE [Concomitant]
     Dosage: 20
  6. ANGIOTENSIN II ANTAGONISTS [Concomitant]
  7. DIURETICS [Concomitant]
  8. FOLIC ACID [Concomitant]
     Dosage: 5 MG TWICE WEEKLY

REACTIONS (5)
  - GENERAL PHYSICAL CONDITION ABNORMAL [None]
  - ARTHRALGIA [None]
  - HAEMOGLOBIN DECREASED [None]
  - RENAL FAILURE [None]
  - PYREXIA [None]
